FAERS Safety Report 15400991 (Version 1)
Quarter: 2018Q3

REPORT INFORMATION
  Report Type: Spontaneous
  Country: US (occurrence: US)
  Receive Date: 20180914
  Receipt Date: 20180914
  Transmission Date: 20181010
  Serious: Yes (Other)
  Sender: FDA-Public Use
  Company Number: None

PATIENT
  Age: 75 Year
  Sex: Male
  Weight: 97.65 kg

DRUGS (3)
  1. VIT B 12 [Concomitant]
  2. VITAMIN D [Concomitant]
     Active Substance: CHOLECALCIFEROL
  3. LUPRON [Suspect]
     Active Substance: LEUPROLIDE ACETATE
     Indication: PROSTATE CANCER
     Dates: start: 20180214

REACTIONS (4)
  - Loss of consciousness [None]
  - Petit mal epilepsy [None]
  - Syncope [None]
  - Fall [None]

NARRATIVE: CASE EVENT DATE: 20180713
